FAERS Safety Report 5575165-9 (Version None)
Quarter: 2007Q4

REPORT INFORMATION
  Report Type: 
  Country: None (occurrence: None)
  Receive Date: 20071227
  Receipt Date: 20071217
  Transmission Date: 20080405
  Serious: Yes (Other)
  Sender: FDA-Public Use
  Company Number: US-PFIZER INC-2007106976

PATIENT
  Sex: Female
  Weight: 51.3 kg

DRUGS (2)
  1. CHANTIX [Suspect]
     Indication: SMOKING CESSATION THERAPY
     Route: 048
     Dates: start: 20070301, end: 20070801
  2. ANTIHYPERTENSIVES [Concomitant]

REACTIONS (2)
  - ARTERIAL THERAPEUTIC PROCEDURE [None]
  - INCORRECT DOSE ADMINISTERED [None]
